FAERS Safety Report 9778329 (Version 2)
Quarter: 2013Q4

REPORT INFORMATION
  Report Type: Spontaneous
  Country: IE (occurrence: IE)
  Receive Date: 20131223
  Receipt Date: 20131230
  Transmission Date: 20140711
  Serious: Yes (Other)
  Sender: FDA-Public Use
  Company Number: IE-TEVA-452137ISR

PATIENT
  Age: 63 Year
  Sex: Male

DRUGS (9)
  1. TEVA MONTELUKAST [Suspect]
     Indication: ASTHMA
     Dosage: 10 MILLIGRAM DAILY;
     Route: 048
     Dates: start: 20131211, end: 20131212
  2. DIOVAN [Concomitant]
     Indication: BLOOD PRESSURE
     Dosage: 80 MILLIGRAM DAILY;
     Route: 048
     Dates: start: 2010, end: 20131207
  3. GLUCOPHAGE [Concomitant]
     Indication: DIABETES MELLITUS
     Dosage: 1000 MILLIGRAM DAILY;
     Route: 048
     Dates: start: 2010, end: 20131207
  4. JANUVIA [Concomitant]
     Indication: DIABETES MELLITUS
     Dosage: 100 MILLIGRAM DAILY;
     Route: 048
     Dates: start: 2010, end: 20131207
  5. JANUVIA [Concomitant]
     Dosage: 80 MILLIGRAM DAILY;
     Route: 048
     Dates: start: 2010, end: 20131207
  6. NU-SEALS [Concomitant]
     Indication: DIABETES MELLITUS
     Dosage: 75 MILLIGRAM DAILY;
     Route: 048
     Dates: start: 2010
  7. SAL EASI-BREATHE [Concomitant]
     Indication: ASTHMA
     Dosage: 400 MICROGRAM DAILY; AS REQUEIRED, UP TO 4 TIMES DAILY
     Route: 055
     Dates: start: 2010, end: 20131207
  8. SAL EASI-BREATHE [Concomitant]
     Indication: CHRONIC OBSTRUCTIVE PULMONARY DISEASE
  9. BECLAZONE EASIBREATHE CFC FREE INHALER [Concomitant]
     Indication: ASTHMA
     Dosage: 200 MICROGRAM DAILY; 2 PUFFS TWICE DAILY AS REQUIRED
     Route: 055
     Dates: start: 2010, end: 20131207

REACTIONS (6)
  - Pain [Recovered/Resolved]
  - Foaming at mouth [Recovered/Resolved]
  - Dysphonia [Recovered/Resolved]
  - Product substitution issue [Recovered/Resolved]
  - Headache [None]
  - Product quality issue [None]
